FAERS Safety Report 21768012 (Version 3)
Quarter: 2023Q1

REPORT INFORMATION
  Report Type: Report from Study
  Country: US (occurrence: US)
  Receive Date: 20221222
  Receipt Date: 20230221
  Transmission Date: 20230418
  Serious: Yes (Hospitalization)
  Sender: FDA-Public Use
  Company Number: US-ABBVIE-4246974

PATIENT
  Sex: Male

DRUGS (2)
  1. IMBRUVICA [Suspect]
     Active Substance: IBRUTINIB
     Indication: Chronic lymphocytic leukaemia
     Route: 048
     Dates: start: 20220308
  2. IMBRUVICA [Suspect]
     Active Substance: IBRUTINIB
     Indication: Chronic lymphocytic leukaemia
     Dosage: LAST ADMIN DATE 2022
     Route: 048
     Dates: start: 20220217

REACTIONS (6)
  - Pleural effusion [Unknown]
  - Depression [Unknown]
  - Hypophagia [Unknown]
  - Fluid intake reduced [Unknown]
  - Productive cough [Unknown]
  - Vomiting [Unknown]
